FAERS Safety Report 10395796 (Version 2)
Quarter: 2014Q1

REPORT INFORMATION
  Report Type: Spontaneous
  Country: US (occurrence: None)
  Receive Date: 20130107
  Receipt Date: 20130724
  Transmission Date: 20141002
  Serious: Yes (Other)
  Sender: FDA-Public Use
  Company Number: PHEH2012US012414

PATIENT
  Age: 39 Year
  Sex: Female
  Weight: 50.8 kg

DRUGS (8)
  1. GILENYA [Suspect]
     Indication: MULTIPLE SCLEROSIS
     Route: 048
     Dates: start: 201108
  2. AMPYRA (FAMPRIDINE) [Concomitant]
  3. BACLOFEN (BACLOFEN) TABLET [Concomitant]
  4. LEXAPRO (ESCITALOPRAM OXALATE) TABLETS [Concomitant]
  5. ADVIL (MEFENAMIC ACID) CAPSULE [Concomitant]
  6. CENTRUM (MINERALS NOS, VITAMINS NOS) TABLET [Concomitant]
  7. DETROL (TOLERODINE L-TARTRATE) EXTENDED RELEASE CAPSULES [Concomitant]
  8. AMLODIPINE BESILATE (AMLODIPINE BESILATE) TABLET [Concomitant]

REACTIONS (10)
  - White blood cell count decreased [None]
  - Fatigue [None]
  - Pain in extremity [None]
  - Hypoaesthesia [None]
  - Constipation [None]
  - Monocyte count increased [None]
  - CD4 lymphocytes decreased [None]
  - CD8 lymphocytes decreased [None]
  - Neutrophil count decreased [None]
  - Lymphocyte count decreased [None]
